FAERS Safety Report 5403490-0 (Version None)
Quarter: 2007Q3

REPORT INFORMATION
  Report Type: 
  Country: None (occurrence: None)
  Receive Date: 20070730
  Receipt Date: 20070725
  Transmission Date: 20080115
  Serious: Yes (Death, Other)
  Sender: FDA-Public Use
  Company Number: 056-C5013-07040269

PATIENT
  Age: 80 Year
  Sex: Male

DRUGS (10)
  1. CC-5013 (LENALIDOMIDE) (CAPSULES) [Suspect]
     Indication: MULTIPLE MYELOMA
     Dosage: DAILY, ORAL
     Route: 048
     Dates: start: 20060912, end: 20061016
  2. DEXAMETHASONE TAB [Concomitant]
  3. NEURONTIN (CABAPENTIN) [Concomitant]
  4. AVOCARDYL (BETA BLOCKING AGENTS) [Concomitant]
  5. DUPHALAC [Concomitant]
  6. DEROXAT (PAROXETINE HYDROCHLORIDE) [Concomitant]
  7. NEORECORMON (EPOETIN BETA) [Concomitant]
  8. TRAMADOL HCL [Concomitant]
  9. ACETAMINOPHEN [Concomitant]
  10. ZOMETA [Concomitant]

REACTIONS (12)
  - ANAEMIA [None]
  - BLOOD GLUCOSE INCREASED [None]
  - BUNDLE BRANCH BLOCK RIGHT [None]
  - HAEMATOTOXICITY [None]
  - HEPATIC FUNCTION ABNORMAL [None]
  - LUNG DISORDER [None]
  - MUSCULAR WEAKNESS [None]
  - NEUTROPHIL COUNT DECREASED [None]
  - PLEURAL EFFUSION [None]
  - PULMONARY EMBOLISM [None]
  - SUPRAVENTRICULAR EXTRASYSTOLES [None]
  - WHITE BLOOD CELL COUNT DECREASED [None]
